FAERS Safety Report 5913244-4 (Version None)
Quarter: 2008Q4

REPORT INFORMATION
  Report Type: 
  Country: None (occurrence: None)
  Receive Date: 20081009
  Receipt Date: 20081003
  Transmission Date: 20090506
  Serious: Yes (Hospitalization)
  Sender: FDA-Public Use
  Company Number: FR-BRISTOL-MYERS SQUIBB COMPANY-14362305

PATIENT
  Age: 64 Year
  Sex: Female

DRUGS (3)
  1. ERBITUX [Suspect]
     Indication: NASAL SINUS CANCER
     Dosage: 17APR08 STARTED AT 400MG/M2 3RD 05MAY08 4TH 27MAY08 5TH 06JUN08 6TH 13JUN08
     Route: 042
     Dates: start: 20080417, end: 20080620
  2. CARBOPLATIN [Suspect]
     Indication: NASAL SINUS CANCER
     Dosage: 1 DF=10MG/ML(STRENGTH) 17APR08 STARTED AT 400MG/M2 4TH 27MAY8 5TH 06JUN8 WITH 1/2DOSE 6TH 30JUN8
     Route: 042
     Dates: start: 20080417, end: 20080620
  3. RADIOTHERAPY [Concomitant]
     Indication: NASAL SINUS CANCER

REACTIONS (2)
  - METASTASES TO MENINGES [None]
  - MYELITIS [None]
